FAERS Safety Report 6385818-0 (Version None)
Quarter: 2009Q4

REPORT INFORMATION
  Report Type: 
  Country: None (occurrence: None)
  Receive Date: 20091002
  Receipt Date: 20050322
  Transmission Date: 20100525
  Serious: Yes (Death)
  Sender: FDA-Public Use
  Company Number: PH-PFIZER INC-2009250500

PATIENT
  Age: 80 Year

DRUGS (5)
  1. CEFOPERAZONE SODIUM, SULBACTAM SODIUM [Suspect]
     Indication: LOWER RESPIRATORY TRACT INFECTION
     Dosage: 1.5 G, 2X/DAY
     Dates: start: 20050301, end: 20050306
  2. CEFOPERAZONE SODIUM, SULBACTAM SODIUM [Suspect]
     Indication: SEPSIS
  3. AMLODIPINE [Concomitant]
     Dosage: UNK
     Dates: start: 19930110
  4. DILTIAZEM [Concomitant]
     Dosage: UNK
     Dates: start: 20001201
  5. ASPIRIN [Concomitant]
     Dosage: UNK
     Dates: start: 19930101

REACTIONS (2)
  - CARDIAC ARREST [None]
  - MULTI-ORGAN FAILURE [None]
